FAERS Safety Report 20058909 (Version 1)
Quarter: 2021Q4

REPORT INFORMATION
  Report Type: Spontaneous
  Country: CN (occurrence: None)
  Receive Date: 20211111
  Receipt Date: 20211111
  Transmission Date: 20220303
  Serious: Yes (Other)
  Sender: FDA-Public Use
  Company Number: 2021A798075

PATIENT
  Age: 4622 Week
  Sex: Female
  Weight: 45 kg

DRUGS (12)
  1. NEXIUM [Suspect]
     Active Substance: ESOMEPRAZOLE MAGNESIUM
     Indication: Gastrooesophageal reflux prophylaxis
     Route: 048
     Dates: start: 20211021, end: 20211027
  2. NEXIUM [Suspect]
     Active Substance: ESOMEPRAZOLE MAGNESIUM
     Indication: Hypotension
     Route: 048
     Dates: start: 20211021, end: 20211027
  3. BUTYLPHTHALIDE [Suspect]
     Active Substance: BUTYLPHTHALIDE
     Indication: Cerebral haemorrhage
     Route: 041
     Dates: start: 20211021, end: 20211029
  4. BUTYLPHTHALIDE [Suspect]
     Active Substance: BUTYLPHTHALIDE
     Indication: Hypotension
     Route: 041
     Dates: start: 20211021, end: 20211029
  5. FUROSEMIDE [Concomitant]
     Active Substance: FUROSEMIDE
     Indication: Hypertension
     Route: 050
     Dates: start: 20211021, end: 20211027
  6. FUROSEMIDE [Concomitant]
     Active Substance: FUROSEMIDE
     Indication: Hypotension
     Route: 050
     Dates: start: 20211021, end: 20211027
  7. CEFOPERAZONE SODIUM\SULBACTAM SODIUM [Concomitant]
     Active Substance: CEFOPERAZONE SODIUM\SULBACTAM SODIUM
     Indication: Prophylaxis
     Route: 041
     Dates: start: 20211021, end: 20211029
  8. CEFOPERAZONE SODIUM\SULBACTAM SODIUM [Concomitant]
     Active Substance: CEFOPERAZONE SODIUM\SULBACTAM SODIUM
     Indication: Hypotension
     Route: 041
     Dates: start: 20211021, end: 20211029
  9. MANNITOL [Concomitant]
     Active Substance: MANNITOL
     Indication: Cerebral haemorrhage
     Route: 041
     Dates: start: 20211021, end: 20211027
  10. MANNITOL [Concomitant]
     Active Substance: MANNITOL
     Indication: Hypotension
     Route: 041
     Dates: start: 20211021, end: 20211027
  11. SPIRONOLACTONE [Concomitant]
     Active Substance: SPIRONOLACTONE
     Indication: Hypertension
     Route: 050
     Dates: start: 20211021, end: 20211027
  12. SPIRONOLACTONE [Concomitant]
     Active Substance: SPIRONOLACTONE
     Indication: Hypotension
     Route: 050
     Dates: start: 20211021, end: 20211027

REACTIONS (4)
  - Atrial fibrillation [Recovered/Resolved]
  - Tachyarrhythmia [Recovered/Resolved]
  - Electrocardiogram ST-T segment abnormal [Recovered/Resolved]
  - Bundle branch block right [Unknown]

NARRATIVE: CASE EVENT DATE: 20211024
